FAERS Safety Report 7096887-7 (Version None)
Quarter: 2010Q4

REPORT INFORMATION
  Report Type: 
  Country: None (occurrence: None)
  Receive Date: 20101111
  Receipt Date: 20100112
  Transmission Date: 20110411
  Serious: No
  Sender: FDA-Public Use
  Company Number: US-KINGPHARMUSA00001-K201000039

PATIENT
  Age: 25 Year
  Sex: Female

DRUGS (1)
  1. FLECTOR [Suspect]
     Indication: TENDONITIS
     Dosage: 1 PATCH, EVERY 12 HOURS
     Route: 061
     Dates: start: 20091201

REACTIONS (1)
  - CHROMATURIA [None]
